FAERS Safety Report 11558399 (Version 1)
Quarter: 2015Q3

REPORT INFORMATION
  Report Type: Spontaneous
  Country: US (occurrence: US)
  Receive Date: 20150928
  Receipt Date: 20150928
  Transmission Date: 20151125
  Serious: No
  Sender: FDA-Public Use
  Company Number: US-PFIZER INC-2015319156

PATIENT
  Sex: Female

DRUGS (1)
  1. CELECOXIB. [Suspect]
     Active Substance: CELECOXIB
     Dosage: UNK
     Dates: start: 201509

REACTIONS (5)
  - Malaise [Unknown]
  - Headache [Unknown]
  - Balance disorder [Unknown]
  - Flushing [Unknown]
  - Feeling abnormal [Unknown]
